FAERS Safety Report 9196723 (Version 1)
Quarter: 2013Q1

REPORT INFORMATION
  Report Type: Spontaneous
  Country: CA (occurrence: CA)
  Receive Date: 20130328
  Receipt Date: 20130328
  Transmission Date: 20140127
  Serious: Yes (Other)
  Sender: FDA-Public Use
  Company Number: CA-AMGEN-CANSP2013006404

PATIENT
  Age: 74 Year
  Sex: Female
  Weight: 74.09 kg

DRUGS (3)
  1. PROLIA [Suspect]
     Indication: OSTEOPOROSIS POSTMENOPAUSAL
     Dosage: UNK
     Dates: start: 20110824
  2. CORTISONE                          /00014602/ [Concomitant]
     Indication: BURSITIS
     Dates: start: 201211
  3. CORTISONE                          /00014602/ [Concomitant]
     Indication: TENDONITIS

REACTIONS (4)
  - Bursitis [Not Recovered/Not Resolved]
  - Tendonitis [Not Recovered/Not Resolved]
  - Pain [Not Recovered/Not Resolved]
  - Joint injury [Not Recovered/Not Resolved]
